FAERS Safety Report 7151050-6 (Version None)
Quarter: 2010Q4

REPORT INFORMATION
  Report Type: 
  Country: None (occurrence: None)
  Receive Date: 20101210
  Receipt Date: 20101206
  Transmission Date: 20110411
  Serious: Yes (Hospitalization)
  Sender: FDA-Public Use
  Company Number: D0069627A

PATIENT
  Age: 70 Year
  Sex: Male

DRUGS (5)
  1. VOTRIENT [Suspect]
     Indication: METASTATIC RENAL CELL CARCINOMA
     Dosage: 800MG PER DAY
     Route: 048
     Dates: start: 20100816
  2. HCT [Concomitant]
     Dosage: 25MG PER DAY
     Route: 048
  3. BISOPROLOL [Concomitant]
     Dosage: 5MG PER DAY
     Route: 048
  4. PREDNISOLONE [Concomitant]
     Indication: METASTATIC RENAL CELL CARCINOMA
     Dosage: 20MG PER DAY
     Route: 065
     Dates: start: 20100816
  5. ALLOPURINOL [Concomitant]
     Dosage: 150MG PER DAY
     Route: 048

REACTIONS (2)
  - CEREBRAL INFARCTION [None]
  - MONOPARESIS [None]
